FAERS Safety Report 17861434 (Version 2)
Quarter: 2020Q2

REPORT INFORMATION
  Report Type: Spontaneous
  Country: CN (occurrence: CN)
  Receive Date: 20200604
  Receipt Date: 20200609
  Transmission Date: 20200714
  Serious: Yes (Life-Threatening, Other)
  Sender: FDA-Public Use
  Company Number: CN-GLAXOSMITHKLINE-CN2020APC087630

PATIENT
  Age: 67 Year
  Sex: Female
  Weight: 60 kg

DRUGS (5)
  1. ZINACEF [Suspect]
     Active Substance: CEFUROXIME SODIUM
     Indication: PNEUMONITIS
     Dosage: 1.5 G
     Route: 041
     Dates: start: 20200519, end: 20200519
  2. REMIFENTANIL HYDROCHLORIDE INJECTION [Concomitant]
     Indication: ANAESTHESIA
     Dosage: 1 MG
     Dates: start: 20200519, end: 20200519
  3. SUFENTANIL CITRATE INJECTION [Concomitant]
     Active Substance: SUFENTANIL CITRATE
     Indication: ANAESTHESIA
     Dosage: 10 UG
     Route: 042
     Dates: start: 20200519, end: 20200519
  4. KUTAI [Suspect]
     Active Substance: CISATRACURIUM BESYLATE
     Indication: ANAESTHESIA
     Dosage: 12 MG
     Route: 042
     Dates: start: 20200519, end: 20200519
  5. MIDAZOLAM INJECTION [Suspect]
     Active Substance: MIDAZOLAM HYDROCHLORIDE
     Indication: ANAESTHESIA
     Dosage: 2 MG
     Route: 042
     Dates: start: 20200519, end: 20200519

REACTIONS (8)
  - Palmar-plantar erythrodysaesthesia syndrome [Recovering/Resolving]
  - Swelling face [Unknown]
  - Rash [Recovering/Resolving]
  - Erythema [Unknown]
  - Oxygen saturation decreased [Recovering/Resolving]
  - Anaphylactic shock [Unknown]
  - Dyspnoea [Recovering/Resolving]
  - Blood pressure decreased [Recovering/Resolving]

NARRATIVE: CASE EVENT DATE: 20200519
